FAERS Safety Report 22778411 (Version 2)
Quarter: 2025Q1

REPORT INFORMATION
  Report Type: Report from Study
  Country: JP (occurrence: JP)
  Receive Date: 20230802
  Receipt Date: 20250114
  Transmission Date: 20250409
  Serious: Yes (Other)
  Sender: ALEXION PHARMACEUTICALS
  Company Number: 2023A171958

PATIENT
  Weight: 53 kg

DRUGS (4)
  1. DURVALUMAB [Suspect]
     Active Substance: DURVALUMAB
     Indication: Non-small cell lung cancer
     Dosage: 1500 MILLIGRAM, Q3W
  2. TREMELIMUMAB [Suspect]
     Active Substance: TREMELIMUMAB
     Indication: Non-small cell lung cancer
     Dosage: 75 MILLIGRAM, Q3W
  3. CARBOPLATIN [Concomitant]
     Active Substance: CARBOPLATIN
     Indication: Non-small cell lung cancer
  4. ABRAXANE [Concomitant]
     Active Substance: PACLITAXEL
     Indication: Non-small cell lung cancer

REACTIONS (2)
  - Pyrexia [Recovered/Resolved]
  - Malaise [Recovered/Resolved]
